FAERS Safety Report 5057665-3 (Version None)
Quarter: 2006Q3

REPORT INFORMATION
  Report Type: 
  Country: None (occurrence: None)
  Receive Date: 20060721
  Receipt Date: 20060111
  Transmission Date: 20061208
  Serious: No
  Sender: FDA-Public Use
  Company Number: US-GLAXOSMITHKLINE-A0588791A

PATIENT
  Age: 62 Year
  Sex: Male

DRUGS (8)
  1. AVANDIA [Suspect]
     Dosage: 8MG PER DAY
     Route: 048
     Dates: start: 20020101, end: 20050801
  2. GLYBURIDE [Concomitant]
  3. ATENOLOL [Concomitant]
  4. AMITRIPTYLINE HCL [Concomitant]
  5. ALTACE [Concomitant]
  6. FUROSEMIDE [Concomitant]
  7. ASPIRIN [Concomitant]
  8. METFORMIN [Concomitant]

REACTIONS (1)
  - FLUID RETENTION [None]
